FAERS Safety Report 7124007-9 (Version None)
Quarter: 2010Q4

REPORT INFORMATION
  Report Type: 
  Country: None (occurrence: None)
  Receive Date: 20101126
  Receipt Date: 20101115
  Transmission Date: 20110411
  Serious: No
  Sender: FDA-Public Use
  Company Number: US-PFIZER INC-2010123898

PATIENT
  Sex: Female
  Weight: 113.39 kg

DRUGS (2)
  1. DEPO-PROVERA [Suspect]
     Dosage: 150 MG EVERY 3 MONTHS
     Route: 030
     Dates: start: 20040101
  2. TRIAMCINOLONE ACETONIDE [Concomitant]
     Dosage: UNK

REACTIONS (5)
  - CYSTOCELE [None]
  - METRORRHAGIA [None]
  - NECK PAIN [None]
  - PAIN IN EXTREMITY [None]
  - PELVIC DISCOMFORT [None]
